FAERS Safety Report 5554911-4 (Version None)
Quarter: 2007Q4

REPORT INFORMATION
  Report Type: 
  Country: None (occurrence: None)
  Receive Date: 20071213
  Receipt Date: 20071205
  Transmission Date: 20080405
  Serious: Yes (Other)
  Sender: FDA-Public Use
  Company Number: GB-SOLVAY-00307035239

PATIENT
  Sex: Female

DRUGS (1)
  1. CREON [Suspect]
     Indication: ILL-DEFINED DISORDER
     Dosage: DAILY DOSE:  UNKNOWN
     Route: 048

REACTIONS (1)
  - DISTAL INTESTINAL OBSTRUCTION SYNDROME [None]
